FAERS Safety Report 9701615 (Version 2)
Quarter: 2013Q4

REPORT INFORMATION
  Report Type: Spontaneous
  Country: US (occurrence: US)
  Receive Date: 20131121
  Receipt Date: 20131228
  Transmission Date: 20140711
  Serious: No
  Sender: FDA-Public Use
  Company Number: US-009507513-1311USA008631

PATIENT
  Sex: Female
  Weight: 86.17 kg

DRUGS (2)
  1. OXYTROL FOR WOMEN [Suspect]
     Indication: HYPERTONIC BLADDER
     Dosage: 1 DF, Q4D
     Route: 062
     Dates: start: 20131021, end: 20131025
  2. OXYTROL FOR WOMEN [Suspect]
     Dosage: 1 DF, Q4D
     Route: 062
     Dates: start: 2013, end: 2013

REACTIONS (1)
  - Therapeutic response decreased [Unknown]
